FAERS Safety Report 14014747 (Version 1)
Quarter: 2017Q3

REPORT INFORMATION
  Report Type: Spontaneous
  Country: US (occurrence: US)
  Receive Date: 20170927
  Receipt Date: 20170927
  Transmission Date: 20171128
  Serious: Yes (Other)
  Sender: FDA-Public Use
  Company Number: None

PATIENT
  Age: 64 Year
  Sex: Female
  Weight: 75.15 kg

DRUGS (16)
  1. ALPHA LIPOIC ACID [Concomitant]
     Active Substance: .ALPHA.-LIPOIC ACID
  2. COENZYME Q10 [Concomitant]
     Active Substance: UBIDECARENONE
  3. TYLENOL [Concomitant]
     Active Substance: ACETAMINOPHEN
  4. PLAVIX [Concomitant]
     Active Substance: CLOPIDOGREL BISULFATE
  5. DOCUSATE SODIUM. [Concomitant]
     Active Substance: DOCUSATE SODIUM
  6. GLIMPRIDE [Concomitant]
  7. PRAVASTATIN. [Suspect]
     Active Substance: PRAVASTATIN
     Indication: HYPERLIPIDAEMIA
     Dosage: ?          QUANTITY:90 TABLET(S);?
     Route: 048
     Dates: start: 20170912, end: 20170925
  8. CALCIUM [Concomitant]
     Active Substance: CALCIUM
  9. MAGNESIUM [Concomitant]
     Active Substance: MAGNESIUM
  10. LISIONPRIL-HCTZ [Concomitant]
  11. HAWTHORN BERRY EXTRACT [Concomitant]
     Active Substance: CRATAEGUS DOUGLASII FRUIT
  12. MULTI VITAMIN [Concomitant]
     Active Substance: VITAMINS
  13. AREDS [Concomitant]
     Active Substance: MINERALS\VITAMINS
  14. GABAPENTIN. [Concomitant]
     Active Substance: GABAPENTIN
  15. METFORMIN [Concomitant]
     Active Substance: METFORMIN HYDROCHLORIDE
  16. PEPCID [Concomitant]
     Active Substance: FAMOTIDINE

REACTIONS (4)
  - Drug dispensing error [None]
  - Wrong drug administered [None]
  - Rash [None]
  - Product label on wrong product [None]

NARRATIVE: CASE EVENT DATE: 20170918
